FAERS Safety Report 24789046 (Version 2)
Quarter: 2025Q1

REPORT INFORMATION
  Report Type: Spontaneous
  Country: FR (occurrence: FR)
  Receive Date: 20241230
  Receipt Date: 20250114
  Transmission Date: 20250409
  Serious: Yes (Other)
  Sender: ALEXION PHARMACEUTICALS
  Company Number: None

PATIENT
  Age: 89 Year
  Weight: 67 kg

DRUGS (25)
  1. OMEPRAZOLE [Suspect]
     Active Substance: OMEPRAZOLE
     Route: 065
  2. OMEPRAZOLE [Suspect]
     Active Substance: OMEPRAZOLE
     Route: 065
  3. OMEPRAZOLE [Suspect]
     Active Substance: OMEPRAZOLE
     Route: 065
  4. OMEPRAZOLE [Suspect]
     Active Substance: OMEPRAZOLE
     Route: 065
  5. TICAGRELOR [Suspect]
     Active Substance: TICAGRELOR
     Indication: Infarction
     Dosage: 180 MILLIGRAM, QD, 90 MG MORNING AND EVENING
  6. TICAGRELOR [Suspect]
     Active Substance: TICAGRELOR
     Dosage: 180 MILLIGRAM, QD, 90 MG MORNING AND EVENING
     Route: 048
  7. TICAGRELOR [Suspect]
     Active Substance: TICAGRELOR
     Dosage: 180 MILLIGRAM, QD, 90 MG MORNING AND EVENING
  8. TICAGRELOR [Suspect]
     Active Substance: TICAGRELOR
     Dosage: 180 MILLIGRAM, QD, 90 MG MORNING AND EVENING
     Route: 048
  9. URAPIDIL [Suspect]
     Active Substance: URAPIDIL
     Indication: Hypertension
     Route: 065
  10. URAPIDIL [Suspect]
     Active Substance: URAPIDIL
     Route: 065
  11. URAPIDIL [Suspect]
     Active Substance: URAPIDIL
     Indication: Hypertension
     Dosage: 60 MILLIGRAM, QD, 30 MG MORNING AND EVENING
     Route: 048
  12. URAPIDIL [Suspect]
     Active Substance: URAPIDIL
     Dosage: 60 MILLIGRAM, QD, 30 MG MORNING AND EVENING
  13. BISOPROLOL [Suspect]
     Active Substance: BISOPROLOL
     Indication: Infarction
     Dosage: 2.5 MILLIGRAM, QD, 2.5 MG IN THE MORNING
     Route: 048
  14. BISOPROLOL [Suspect]
     Active Substance: BISOPROLOL
     Dosage: 2.5 MILLIGRAM, QD, 2.5 MG IN THE MORNING
  15. KAYEXALATE [Suspect]
     Active Substance: SODIUM POLYSTYRENE SULFONATE
     Indication: Dyskalaemia
     Dosage: 3 DOSAGE FORM, QW, 1 MEASURING SPOON ON MONDAY WEDNESDAY AND SATURDAY
     Route: 048
  16. KAYEXALATE [Suspect]
     Active Substance: SODIUM POLYSTYRENE SULFONATE
     Dosage: 3 DOSAGE FORM, QW, 1 MEASURING SPOON ON MONDAY WEDNESDAY AND SATURDAY
  17. VENLAFAXINE [Concomitant]
     Active Substance: VENLAFAXINE HYDROCHLORIDE
  18. KARDEGIC [Concomitant]
     Active Substance: ASPIRIN DL-LYSINE
  19. ATORVASTATIN [Concomitant]
     Active Substance: ATORVASTATIN
  20. GAVISCON [Concomitant]
     Active Substance: ALUMINUM HYDROXIDE\MAGNESIUM CARBONATE
  21. NITROGLYCERIN [Concomitant]
     Active Substance: NITROGLYCERIN
  22. VITAMIN D3 [Concomitant]
     Active Substance: CHOLECALCIFEROL
  23. LERCANIDIPINE [Concomitant]
     Active Substance: LERCANIDIPINE
  24. POLYETHYLENE GLYCOLS [Concomitant]
     Active Substance: POLYETHYLENE GLYCOLS
  25. DOLIPRANE [Concomitant]
     Active Substance: ACETAMINOPHEN

REACTIONS (2)
  - Interstitial lung disease [Recovering/Resolving]
  - Diastolic dysfunction [Recovering/Resolving]
